FAERS Safety Report 6657422-8 (Version None)
Quarter: 2010Q1

REPORT INFORMATION
  Report Type: 
  Country: None (occurrence: None)
  Receive Date: 20100330
  Receipt Date: 20100318
  Transmission Date: 20100710
  Serious: Yes (Hospitalization)
  Sender: FDA-Public Use
  Company Number: IT-PFIZER INC-2010014375

PATIENT
  Age: 71 Year
  Sex: Male

DRUGS (6)
  1. SOLU-MEDROL [Suspect]
     Indication: NON-HODGKIN'S LYMPHOMA
     Dosage: 125 MG, 1X/DAY
     Route: 030
     Dates: start: 20091017
  2. CYCLOPHOSPHAMIDE [Suspect]
     Indication: NON-HODGKIN'S LYMPHOMA
     Dosage: 1500 MG, UNK
     Route: 042
     Dates: start: 20091016
  3. DOXORUBICIN EBEWE [Suspect]
     Indication: NON-HODGKIN'S LYMPHOMA
     Dosage: 100 MG, UNK
     Route: 042
     Dates: start: 20091016
  4. VINCRISTINE [Suspect]
     Indication: NON-HODGKIN'S LYMPHOMA
     Dosage: 2 MG, UNK
     Route: 042
     Dates: start: 20091016, end: 20091016
  5. SPORANOX [Concomitant]
     Dosage: 40 ML OF A 10MG/ML SOLUTION
     Route: 048
  6. ZEFFIX [Concomitant]
     Dosage: 100 MG, UNK
     Route: 048

REACTIONS (4)
  - DYSURIA [None]
  - PNEUMONIA [None]
  - PYREXIA [None]
  - URINARY TRACT INFECTION [None]
